FAERS Safety Report 5994039-2 (Version None)
Quarter: 2008Q4

REPORT INFORMATION
  Report Type: 
  Country: None (occurrence: None)
  Receive Date: 20081212
  Receipt Date: 20080903
  Transmission Date: 20090506
  Serious: No
  Sender: FDA-Public Use
  Company Number: US-ABBOTT-08P-163-0472383-00

PATIENT
  Sex: Male

DRUGS (23)
  1. HUMIRA [Suspect]
     Indication: PSORIATIC ARTHROPATHY
     Route: 058
     Dates: start: 20070501
  2. HUMIRA [Suspect]
     Indication: PSORIASIS
  3. PREGABALIN [Concomitant]
     Indication: PAIN
     Route: 048
     Dates: start: 20080801
  4. PREDNISONE TAB [Concomitant]
     Indication: INFLAMMATION
     Dosage: 40-50MG
     Route: 048
     Dates: start: 20080810
  5. LEVOTHYROXINE SODIUM [Concomitant]
     Indication: HYPOTHYROIDISM
     Route: 048
     Dates: start: 20010101
  6. RAMIPRIL [Concomitant]
     Indication: BLOOD PRESSURE
     Route: 048
  7. AMLODIPINE MALEATE [Concomitant]
     Indication: BLOOD PRESSURE
     Route: 048
  8. NORGESIC [Concomitant]
     Indication: PAIN
     Route: 062
  9. OXYCODONE HCL [Concomitant]
     Indication: PAIN
     Route: 048
  10. ACETYLSALICYLIC ACID SRT [Concomitant]
     Indication: ANTICOAGULANT THERAPY
     Dosage: LOW DOSE
     Route: 048
  11. ESOMEPRAZOLE MAGNESIUM [Concomitant]
     Indication: GASTRIC DISORDER
     Route: 048
  12. FUROSEMIDE [Concomitant]
     Indication: BLOOD PRESSURE
     Route: 048
  13. POTASSIUM CHLORIDE [Concomitant]
     Indication: MINERAL SUPPLEMENTATION
     Route: 048
  14. CALCIUM-SANDOZ [Concomitant]
     Indication: MINERAL SUPPLEMENTATION
     Dosage: 100-200MG
     Route: 048
  15. METOPROLOL TARTRATE [Concomitant]
     Indication: BLOOD PRESSURE
     Route: 048
  16. TOCOPHERYL ACETATE [Concomitant]
     Indication: VITAMIN SUPPLEMENTATION
     Route: 048
  17. COD-LIVER OIL [Concomitant]
     Indication: MEDICAL DIET
     Route: 048
  18. NICOTINAM. W/PYRIDOXI. HCL/RIBOFL./THIAM. HCL [Concomitant]
     Indication: VITAMIN SUPPLEMENTATION
     Route: 048
  19. VIGRAN [Concomitant]
     Indication: VITAMIN SUPPLEMENTATION
     Route: 048
  20. FOLIC ACID [Concomitant]
     Indication: VITAMIN SUPPLEMENTATION
     Route: 048
  21. ALENDRONATE SODIUM [Concomitant]
     Indication: BONE DISORDER
     Route: 048
  22. TOPICAL STEROIDS [Concomitant]
     Indication: INFLAMMATION
     Dosage: AS NEEDED TO AFFECTED AREAS
     Route: 061
  23. MUPIROCIN [Concomitant]
     Indication: INFECTION
     Dosage: AS NEEDED TO AFFECTED AREAS
     Route: 061

REACTIONS (3)
  - DRUG INEFFECTIVE [None]
  - INSOMNIA [None]
  - PROCEDURAL COMPLICATION [None]
